FAERS Safety Report 8151284-8 (Version None)
Quarter: 2012Q1

REPORT INFORMATION
  Report Type: 
  Country: None (occurrence: None)
  Receive Date: 20120220
  Receipt Date: 20120126
  Transmission Date: 20120608
  Serious: Yes (Hospitalization)
  Sender: FDA-Public Use
  Company Number: JP-ASTRAZENECA-2010SE20555

PATIENT
  Age: 16683 Day
  Sex: Male
  Weight: 85 kg

DRUGS (7)
  1. MEROPENEM [Suspect]
     Indication: PNEUMONIA BACTERIAL
     Route: 042
  2. RIFADIN [Concomitant]
     Route: 048
  3. AZITHROMYCIN HYDRATE [Concomitant]
  4. METHYLPREDNISOLONE [Concomitant]
  5. PAZUCROSS [Suspect]
  6. SIVELESTAT SODIUM HYDRATE [Concomitant]
  7. GABEXATE MESILATE S [Concomitant]

REACTIONS (1)
  - TOXIC EPIDERMAL NECROLYSIS [None]
